FAERS Safety Report 7440364-8 (Version None)
Quarter: 2011Q2

REPORT INFORMATION
  Report Type: 
  Country: None (occurrence: None)
  Receive Date: 20110427
  Receipt Date: 20110415
  Transmission Date: 20111010
  Serious: Yes (Other)
  Sender: FDA-Public Use
  Company Number: NO-MERCK-1104NOR00009

PATIENT
  Age: 14 Year
  Sex: Male

DRUGS (4)
  1. FEXOFENADINE HYDROCHLORIDE [Concomitant]
     Route: 048
  2. ALBUTEROL SULFATE [Concomitant]
     Indication: ASTHMA
     Route: 055
  3. SINGULAIR [Suspect]
     Indication: ASTHMA
     Route: 048
     Dates: start: 20110310, end: 20110329
  4. FLUTICASONE PROPIONATE AND SALMETEROL XINAFOATE [Concomitant]
     Indication: ASTHMA
     Route: 055

REACTIONS (2)
  - URTICARIA [None]
  - ERYTHEMA MULTIFORME [None]
